FAERS Safety Report 22644824 (Version 1)
Quarter: 2023Q2

REPORT INFORMATION
  Report Type: Spontaneous
  Country: None (occurrence: US)
  Receive Date: 20230627
  Receipt Date: 20230627
  Transmission Date: 20230722
  Serious: No
  Sender: FDA-Public Use
  Company Number: US-Mission Pharmacal Company-2143152

PATIENT
  Age: 61 Year
  Sex: Male

DRUGS (3)
  1. THIOLA EC [Suspect]
     Active Substance: TIOPRONIN
     Indication: Cystinuria
     Route: 048
     Dates: start: 20221003
  2. CLOBETASOL PROPIONATE EMOLLIENT BASE [Concomitant]
  3. CALCIPOTRIENE [Concomitant]
     Active Substance: CALCIPOTRIENE

REACTIONS (1)
  - Blister [Unknown]
